FAERS Safety Report 23729267 (Version 1)
Quarter: 2024Q2

REPORT INFORMATION
  Report Type: Spontaneous
  Country: US (occurrence: US)
  Receive Date: 20240410
  Receipt Date: 20240410
  Transmission Date: 20240715
  Serious: No
  Sender: FDA-Public Use
  Company Number: US-FOUNDATIONCONSUMERHC-2024-US-004293

PATIENT
  Age: 29 Year
  Sex: Female
  Weight: 58.97 kg

DRUGS (3)
  1. PLAN B ONE-STEP [Suspect]
     Active Substance: LEVONORGESTREL
     Indication: Post coital contraception
     Dosage: 1 DOSE
     Route: 048
     Dates: start: 20240107, end: 20240107
  2. CREATINE [Concomitant]
     Active Substance: CREATINE
  3. MAGNESIUM [Concomitant]
     Active Substance: MAGNESIUM

REACTIONS (5)
  - Vaginal haemorrhage [Not Recovered/Not Resolved]
  - Abnormal menstrual clots [Not Recovered/Not Resolved]
  - Muscle spasms [Not Recovered/Not Resolved]
  - Fatigue [Not Recovered/Not Resolved]
  - Dark circles under eyes [Not Recovered/Not Resolved]

NARRATIVE: CASE EVENT DATE: 20240112
